FAERS Safety Report 24285567 (Version 1)
Quarter: 2024Q3

REPORT INFORMATION
  Report Type: Spontaneous
  Country: CN (occurrence: CN)
  Receive Date: 20240905
  Receipt Date: 20240905
  Transmission Date: 20241017
  Serious: Yes (Other)
  Sender: MERCK
  Company Number: CN-009507513-2408CHN009990

PATIENT
  Age: 53 Year
  Sex: Male

DRUGS (1)
  1. INVANZ [Suspect]
     Active Substance: ERTAPENEM SODIUM
     Indication: Spontaneous bacterial peritonitis
     Dosage: 1.0 G, QD
     Route: 041
     Dates: start: 20240810, end: 20240810

REACTIONS (2)
  - Hypoaesthesia [Recovered/Resolved]
  - Quadriparesis [Recovered/Resolved]

NARRATIVE: CASE EVENT DATE: 20240810
